FAERS Safety Report 4577742-0 (Version None)
Quarter: 2005Q1

REPORT INFORMATION
  Report Type: 
  Country: None (occurrence: None)
  Receive Date: 20050201
  Receipt Date: 20050124
  Transmission Date: 20050727
  Serious: Yes (Hospitalization)
  Sender: FDA-Public Use
  Company Number: E2005-00258

PATIENT
  Age: 10 Month
  Sex: Male

DRUGS (1)
  1. TUBERSOL [Suspect]
     Indication: TUBERCULIN TEST
     Dosage: 0.1 ML I.D.
     Route: 023
     Dates: start: 20040929

REACTIONS (8)
  - APPLICATION SITE PAPULES [None]
  - GASTROENTERITIS [None]
  - INJECTION SITE ABSCESS [None]
  - INJECTION SITE ERYTHEMA [None]
  - INJECTION SITE REACTION [None]
  - LABORATORY TEST INTERFERENCE [None]
  - POST PROCEDURAL COMPLICATION [None]
  - SCAR [None]
